FAERS Safety Report 5731312-7 (Version None)
Quarter: 2008Q2

REPORT INFORMATION
  Report Type: 
  Country: None (occurrence: None)
  Receive Date: 20080505
  Receipt Date: 20080428
  Transmission Date: 20081010
  Serious: Yes (Hospitalization, Other)
  Sender: FDA-Public Use
  Company Number: 2008010733

PATIENT
  Age: 77 Year
  Sex: Female
  Weight: 83.9154 kg

DRUGS (3)
  1. BENADRYL [Suspect]
     Indication: HERPES ZOSTER
     Dosage: ORAL
     Route: 048
     Dates: start: 20080413
  2. MULTI-VITAMINS [Concomitant]
  3. DARVOCET [Concomitant]

REACTIONS (2)
  - DRUG INEFFECTIVE [None]
  - PNEUMONIA [None]
